FAERS Safety Report 5628646-3 (Version None)
Quarter: 2008Q1

REPORT INFORMATION
  Report Type: 
  Country: None (occurrence: None)
  Receive Date: 20080214
  Receipt Date: 20080214
  Transmission Date: 20080703
  Serious: Yes (Hospitalization)
  Sender: FDA-Public Use
  Company Number: None

PATIENT
  Sex: 0
  Weight: 61.6892 kg

DRUGS (3)
  1. CISPLATIN [Suspect]
     Indication: NEOPLASM MALIGNANT
     Dosage: CISPLATIN X5/CARBOX2 WKLY 7 WEEKS IV
     Route: 042
     Dates: start: 20071129, end: 20080116
  2. PANITUMUMAB FOR 7 CYCLES [Suspect]
     Dosage: PANITUMUMAB WEEKLY FOR 7WKS IV
     Route: 042
     Dates: start: 20071129, end: 20080116
  3. RADIATION THERAPY [Concomitant]

REACTIONS (5)
  - ATAXIA [None]
  - DIZZINESS [None]
  - NAUSEA [None]
  - NO THERAPEUTIC RESPONSE [None]
  - VOMITING [None]
